FAERS Safety Report 19976860 (Version 4)
Quarter: 2022Q2

REPORT INFORMATION
  Report Type: Report from Study
  Country: US (occurrence: US)
  Receive Date: 20211021
  Receipt Date: 20220425
  Transmission Date: 20220721
  Serious: No
  Sender: FDA-Public Use
  Company Number: US-NOVARTISTESTPH-NVSC2021US237414

PATIENT
  Sex: Female

DRUGS (1)
  1. COSENTYX [Suspect]
     Active Substance: SECUKINUMAB
     Indication: Psoriatic arthropathy
     Dosage: UNK UNK, UNKNOWN (ONCE A WEEK FOR 5 WEEKS AND THEN Q 4)
     Route: 065

REACTIONS (5)
  - Pain [Not Recovered/Not Resolved]
  - Erythema [Recovering/Resolving]
  - Injection site pain [Unknown]
  - Illness [Unknown]
  - Malaise [Unknown]
